FAERS Safety Report 13654401 (Version 1)
Quarter: 2017Q2

REPORT INFORMATION
  Report Type: Spontaneous
  Country: US (occurrence: US)
  Receive Date: 20170615
  Receipt Date: 20170615
  Transmission Date: 20170830
  Serious: Yes (Other)
  Sender: FDA-Public Use
  Company Number: US-AMGEN-USASP2017087519

PATIENT
  Age: 8 Year
  Sex: Male
  Weight: 37.8 kg

DRUGS (6)
  1. BLINCYTO [Suspect]
     Active Substance: BLINATUMOMAB
     Indication: ACUTE LYMPHOCYTIC LEUKAEMIA RECURRENT
     Dosage: 15 MCG/M2, UNK
     Route: 065
     Dates: start: 20170125
  2. BLINCYTO [Suspect]
     Active Substance: BLINATUMOMAB
     Dosage: 7.5 MCG/M2, UNK
     Route: 065
  3. BLINCYTO [Suspect]
     Active Substance: BLINATUMOMAB
     Dosage: 10 MCG/M2, UNK
     Route: 065
  4. METHOTREXATE. [Suspect]
     Active Substance: METHOTREXATE
     Indication: PRODUCT USED FOR UNKNOWN INDICATION
     Route: 065
  5. BLINCYTO [Suspect]
     Active Substance: BLINATUMOMAB
     Dosage: 5 MCG/M2, UNK
     Route: 065
  6. DECADRON [Concomitant]
     Active Substance: DEXAMETHASONE

REACTIONS (7)
  - Posterior reversible encephalopathy syndrome [Unknown]
  - Lethargy [Unknown]
  - Confusional state [Unknown]
  - Hypertension [Unknown]
  - Dysmetria [Unknown]
  - Neutropenia [Unknown]
  - Pyrexia [Unknown]

NARRATIVE: CASE EVENT DATE: 2017
